FAERS Safety Report 9007076 (Version 1)
Quarter: 2013Q1

REPORT INFORMATION
  Report Type: Report from Study
  Country: DE (occurrence: DE)
  Receive Date: 20130110
  Receipt Date: 20130110
  Transmission Date: 20140127
  Serious: Yes (Death, Hospitalization)
  Sender: FDA-Public Use
  Company Number: DE-EISAI INC-E7389-03046-CLI-DE

PATIENT
  Age: 85 Year
  Sex: Female
  Weight: 60 kg

DRUGS (9)
  1. HALAVEN [Suspect]
     Indication: BREAST CANCER METASTATIC
     Route: 041
     Dates: start: 20120724, end: 20120911
  2. LAPATINIB [Suspect]
     Indication: BREAST CANCER METASTATIC
     Route: 041
     Dates: start: 20120808, end: 20120919
  3. LAPATINIB [Suspect]
     Route: 041
     Dates: start: 20120724, end: 20120805
  4. GLUCOBAY [Concomitant]
     Dates: start: 20080801
  5. VERAPAMIL [Concomitant]
     Dates: start: 20090505
  6. FURESIS [Concomitant]
  7. ARIXTRA [Concomitant]
  8. ERYFER [Concomitant]
  9. CALCIUM [Concomitant]

REACTIONS (3)
  - Pneumonia [Fatal]
  - Sepsis [Fatal]
  - Fatigue [Not Recovered/Not Resolved]
